FAERS Safety Report 8332670-X (Version None)
Quarter: 2012Q1

REPORT INFORMATION
  Report Type: 
  Country: None (occurrence: None)
  Receive Date: 20120327
  Receipt Date: 20100727
  Transmission Date: 20120608
  Serious: Yes (Hospitalization, Other)
  Sender: FDA-Public Use
  Company Number: PHEH2010US00536

PATIENT
  Age: 52 Year
  Sex: Female

DRUGS (4)
  1. GLEEVEC [Suspect]
     Indication: CHRONIC MYELOID LEUKAEMIA
     Dosage: 400 MG DAILY, ORAL
     Route: 048
     Dates: start: 20090512
  2. GLEEVEC [Suspect]
     Indication: CHRONIC MYELOID LEUKAEMIA
     Dosage: 300 MG, QD, ORAL; 100 MG, QD, ORAL
     Route: 048
     Dates: start: 20100101
  3. GLEEVEC [Suspect]
     Indication: CHRONIC MYELOID LEUKAEMIA
     Dosage: 300 MG, QD, ORAL; 100 MG, QD, ORAL
     Route: 048
     Dates: start: 20100113
  4. GLEEVEC [Suspect]
     Indication: CHRONIC MYELOID LEUKAEMIA
     Dosage: 400 MG, QD, ORAL
     Route: 048
     Dates: start: 20091231

REACTIONS (12)
  - NEUTROPHIL COUNT DECREASED [None]
  - WEIGHT INCREASED [None]
  - BONE PAIN [None]
  - SWELLING [None]
  - THROMBOCYTOPENIA [None]
  - MYALGIA [None]
  - DYSPNOEA [None]
  - WHITE BLOOD CELL COUNT DECREASED [None]
  - PULMONARY EMBOLISM [None]
  - LEUKOPENIA [None]
  - FLUID RETENTION [None]
  - MUSCLE SPASMS [None]
